FAERS Safety Report 4523352-0 (Version None)
Quarter: 2004Q4

REPORT INFORMATION
  Report Type: 
  Country: None (occurrence: None)
  Receive Date: 20041209
  Receipt Date: 20041209
  Transmission Date: 20050328
  Serious: Yes (Hospitalization, Disabling)
  Sender: FDA-Public Use
  Company Number: None

PATIENT
  Sex: Male
  Weight: 90.7194 kg

DRUGS (5)
  1. EFFEXOR XR [Suspect]
     Indication: ALCOHOLISM
     Dosage: 300 MG  QD  ORAL
     Route: 048
     Dates: start: 20040628, end: 20041111
  2. EFFEXOR XR [Suspect]
     Indication: DEPRESSION
     Dosage: 300 MG  QD  ORAL
     Route: 048
     Dates: start: 20040628, end: 20041111
  3. TRAZODONE HCL [Suspect]
     Indication: DEPRESSION
     Dosage: 100 MG QD ORAL
     Route: 048
     Dates: start: 20040628, end: 20041115
  4. TRAZODONE HCL [Suspect]
     Indication: SLEEP DISORDER
     Dosage: 100 MG QD ORAL
     Route: 048
     Dates: start: 20040628, end: 20041115
  5. ALTACE [Concomitant]

REACTIONS (13)
  - ABNORMAL BEHAVIOUR [None]
  - ABNORMAL DREAMS [None]
  - ANOREXIA [None]
  - BIPOLAR I DISORDER [None]
  - CONSTIPATION [None]
  - DRUG WITHDRAWAL SYNDROME [None]
  - EJACULATION DISORDER [None]
  - HALLUCINATION, VISUAL [None]
  - HYPOMANIA [None]
  - IMPAIRED WORK ABILITY [None]
  - IRRITABILITY [None]
  - LOGORRHOEA [None]
  - MOOD ALTERED [None]
